FAERS Safety Report 5056265-9 (Version None)
Quarter: 2006Q3

REPORT INFORMATION
  Report Type: 
  Country: None (occurrence: None)
  Receive Date: 20060717
  Receipt Date: 20060707
  Transmission Date: 20061208
  Serious: Yes (Hospitalization, Other)
  Sender: FDA-Public Use
  Company Number: 2006079372

PATIENT
  Age: 61 Year
  Sex: Male

DRUGS (7)
  1. CABERGOLINE [Suspect]
     Indication: DRUG USE FOR UNKNOWN INDICATION
     Dosage: ORAL
     Route: 048
  2. ARTANE [Concomitant]
  3. SYMMETREL [Concomitant]
  4. MUCOSTA (REBAMIPIDE) [Concomitant]
  5. MEILAX (ETHYL LOFLAZEPATE) [Concomitant]
  6. PAXIL [Concomitant]
  7. SIFROL (PRAMIPEXOLE DIHYDROCHLORIDE) [Concomitant]

REACTIONS (1)
  - RHABDOMYOLYSIS [None]
